FAERS Safety Report 8144295-X (Version None)
Quarter: 2012Q1

REPORT INFORMATION
  Report Type: 
  Country: None (occurrence: None)
  Receive Date: 20120217
  Receipt Date: 20120213
  Transmission Date: 20120608
  Serious: Yes (Life-Threatening, Hospitalization, Disabling)
  Sender: FDA-Public Use
  Company Number: DK-B.I. PHARMACEUTICALS,INC./RIDGEFIELD-2012-SW-00112DB

PATIENT
  Sex: Female

DRUGS (2)
  1. ATORVASTATIN CALCIUM [Concomitant]
     Indication: BLOOD CHOLESTEROL INCREASED
     Route: 048
     Dates: start: 20111014
  2. PRADAXA [Suspect]
     Indication: ARTERIOSCLEROSIS
     Dosage: 220 MG
     Route: 048
     Dates: start: 20111115, end: 20120112

REACTIONS (2)
  - DYSPNOEA [None]
  - PULMONARY EMBOLISM [None]
